FAERS Safety Report 18989233 (Version 2)
Quarter: 2021Q1

REPORT INFORMATION
  Report Type: Spontaneous
  Country: US (occurrence: US)
  Receive Date: 20210310
  Receipt Date: 20210329
  Transmission Date: 20210420
  Serious: Yes (Other)
  Sender: FDA-Public Use
  Company Number: US-AUROBINDO-AUR-APL-2021-009616

PATIENT
  Age: 11 Month
  Sex: Male
  Weight: 9.5 kg

DRUGS (1)
  1. OMEPRAZOLE DELAYED?RELEASE CAPSULES USP 10MG [Suspect]
     Active Substance: OMEPRAZOLE
     Indication: DYSPEPSIA
     Dosage: 1 DOSAGE FORM, ONCE A DAY
     Route: 065
     Dates: start: 20210228, end: 20210303

REACTIONS (5)
  - Wrong technique in product usage process [Unknown]
  - Haematochezia [Unknown]
  - Diarrhoea [Unknown]
  - Infantile back arching [Unknown]
  - Mucous stools [Unknown]

NARRATIVE: CASE EVENT DATE: 20210228
